FAERS Safety Report 20059586 (Version 2)
Quarter: 2021Q4

REPORT INFORMATION
  Report Type: Spontaneous
  Country: GB (occurrence: GB)
  Receive Date: 20211111
  Receipt Date: 20211122
  Transmission Date: 20220303
  Serious: Yes (Hospitalization)
  Sender: FDA-Public Use
  Company Number: GB-MYLANLABS-2021M1082221

PATIENT
  Age: 52 Year
  Sex: Female

DRUGS (3)
  1. CLOZARIL [Suspect]
     Active Substance: CLOZAPINE
     Indication: Schizophrenia
     Dosage: 350 MILLIGRAM, QD
     Route: 048
     Dates: start: 20210623
  2. DEPAKOTE [Concomitant]
     Active Substance: DIVALPROEX SODIUM
     Dosage: 500 MILLIGRAM, QD
  3. SCOPOLAMINE [Concomitant]
     Active Substance: SCOPOLAMINE
     Dosage: 300 MICROGRAM, BID

REACTIONS (1)
  - Malaise [Recovered/Resolved]
